FAERS Safety Report 23608663 (Version 1)
Quarter: 2024Q1

REPORT INFORMATION
  Report Type: Spontaneous
  Country: US (occurrence: US)
  Receive Date: 20240308
  Receipt Date: 20240308
  Transmission Date: 20240409
  Serious: Yes (Hospitalization, Other)
  Sender: FDA-Public Use
  Company Number: US-UROGEN PHARMA LTD.-2024-UGN-000035

PATIENT

DRUGS (3)
  1. JELMYTO [Suspect]
     Active Substance: MITOMYCIN
     Indication: Transitional cell cancer of the renal pelvis and ureter
     Dosage: UNK, ONCE A WEEK (INSTILLATION)
     Dates: start: 20240213, end: 20240213
  2. JELMYTO [Suspect]
     Active Substance: MITOMYCIN
     Dosage: UNK, ONCE A WEEK (INSTILLATION)
     Dates: start: 20240220, end: 20240220
  3. JELMYTO [Suspect]
     Active Substance: MITOMYCIN
     Dosage: UNK, ONCE A WEEK (INSTILLATION)
     Dates: start: 20240227, end: 20240227

REACTIONS (4)
  - Arterial haemorrhage [Recovered/Resolved]
  - Pain [Unknown]
  - Tenderness [Unknown]
  - Post procedural complication [Unknown]

NARRATIVE: CASE EVENT DATE: 20240220
